FAERS Safety Report 15893058 (Version 1)
Quarter: 2019Q1

REPORT INFORMATION
  Report Type: Report from Study
  Country: US (occurrence: US)
  Receive Date: 20190130
  Receipt Date: 20190130
  Transmission Date: 20190417
  Serious: No
  Sender: FDA-Public Use
  Company Number: US-EXELIXIS-CABO-18016962

PATIENT
  Sex: Male

DRUGS (1)
  1. CABOMETYX [Suspect]
     Active Substance: CABOZANTINIB S-MALATE
     Indication: RENAL CANCER
     Dosage: 60 MG, QD
     Route: 048
     Dates: start: 20180323

REACTIONS (5)
  - Dysphonia [Unknown]
  - Ear pain [Unknown]
  - Abdominal discomfort [Unknown]
  - Oedema [Unknown]
  - Nasal septum disorder [Unknown]

NARRATIVE: CASE EVENT DATE: 2018
